FAERS Safety Report 8093035-1 (Version None)
Quarter: 2012Q1

REPORT INFORMATION
  Report Type: 
  Country: None (occurrence: None)
  Receive Date: 20120128
  Receipt Date: 20111004
  Transmission Date: 20120608
  Serious: No
  Sender: FDA-Public Use
  Company Number: US-ABBOTT-10P-163-0673199-00

PATIENT
  Age: 48 Year
  Sex: Male

DRUGS (10)
  1. HUMIRA [Suspect]
     Indication: ANKYLOSING SPONDYLITIS
     Dates: start: 20091001, end: 20101001
  2. HUMIRA [Suspect]
     Dates: start: 20100801
  3. VITAMIN D [Concomitant]
     Indication: RHEUMATOID ARTHRITIS
  4. NAPROXEN [Concomitant]
     Indication: PAIN
  5. L-LYSINE [Concomitant]
     Indication: ORAL HERPES
     Dosage: INCREASES TO 6000 BID WHEN HAS COLD SORE
  6. CELEBREX [Concomitant]
     Indication: PRODUCT USED FOR UNKNOWN INDICATION
  7. PRILOSEC [Suspect]
  8. VITAMIN B-12 [Concomitant]
     Indication: VITAMIN B12 DECREASED
  9. PROAIR HFA [Concomitant]
     Indication: PRODUCT USED FOR UNKNOWN INDICATION
  10. PRILOSEC [Concomitant]
     Indication: PRODUCT USED FOR UNKNOWN INDICATION

REACTIONS (8)
  - INJECTION SITE PAIN [None]
  - ORAL HERPES [None]
  - PLANTAR FASCIITIS [None]
  - PARAESTHESIA [None]
  - INJECTION SITE HAEMORRHAGE [None]
  - DIZZINESS [None]
  - ANKYLOSING SPONDYLITIS [None]
  - IRITIS [None]
